FAERS Safety Report 9813929 (Version 1)
Quarter: 2014Q1

REPORT INFORMATION
  Report Type: Spontaneous
  Country: US (occurrence: US)
  Receive Date: 20140113
  Receipt Date: 20140113
  Transmission Date: 20141002
  Serious: Yes (Other)
  Sender: FDA-Public Use
  Company Number: PHHY2014US002288

PATIENT
  Age: 40 Year
  Sex: Female

DRUGS (12)
  1. OXALIPLATIN [Suspect]
     Indication: METASTASES TO LIVER
     Dosage: 140 MG/M2, UNK
     Route: 041
  2. OXALIPLATIN [Suspect]
     Indication: METASTASES TO LUNG
  3. OXALIPLATIN [Suspect]
     Indication: COLORECTAL CANCER
  4. 5 FLUORO URACIL [Concomitant]
     Indication: METASTASES TO LIVER
     Dosage: 1750 MG/M2, UNK
  5. 5 FLUORO URACIL [Concomitant]
     Indication: COLORECTAL CANCER
  6. BEVACIZUMAB [Concomitant]
     Indication: METASTASES TO LIVER
     Dosage: 10 MG/KG, UNK
     Route: 042
  7. BEVACIZUMAB [Concomitant]
     Indication: COLORECTAL CANCER
  8. ALPRAZOLAM [Concomitant]
  9. FENTANYL [Concomitant]
     Route: 062
  10. HYDROCODONE/HOMATROPINE [Concomitant]
  11. LORAZEPAM [Concomitant]
  12. METOPROLOL [Concomitant]

REACTIONS (3)
  - Hypertension [Unknown]
  - Oxygen saturation decreased [Unknown]
  - Hyperbilirubinaemia [Recovered/Resolved]
